FAERS Safety Report 24078746 (Version 1)
Quarter: 2024Q3

REPORT INFORMATION
  Report Type: Spontaneous
  Country: US (occurrence: US)
  Receive Date: 20240711
  Receipt Date: 20240711
  Transmission Date: 20241017
  Serious: No
  Sender: ELI LILLY AND CO
  Company Number: US-ELI_LILLY_AND_COMPANY-US202407005646

PATIENT
  Age: 50 Year
  Sex: Female

DRUGS (15)
  1. ZEPBOUND [Suspect]
     Active Substance: TIRZEPATIDE
     Indication: Blood pressure measurement
     Dosage: UNK UNK, UNKNOWN
     Route: 065
  2. ZEPBOUND [Suspect]
     Active Substance: TIRZEPATIDE
     Indication: Blood cholesterol increased
  3. ZEPBOUND [Suspect]
     Active Substance: TIRZEPATIDE
     Indication: Weight control
  4. ZEPBOUND [Suspect]
     Active Substance: TIRZEPATIDE
     Indication: Weight control
     Dosage: 12.5 MG, UNKNOWN
     Route: 058
  5. ZEPBOUND [Suspect]
     Active Substance: TIRZEPATIDE
     Indication: Weight control
     Dosage: 12.5 MG, UNKNOWN
     Route: 058
  6. ZEPBOUND [Suspect]
     Active Substance: TIRZEPATIDE
     Indication: Weight control
     Dosage: 12.5 MG, UNKNOWN
     Route: 058
  7. ZEPBOUND [Suspect]
     Active Substance: TIRZEPATIDE
     Indication: Weight control
     Dosage: 12.5 MG, UNKNOWN
     Route: 058
  8. ZEPBOUND [Suspect]
     Active Substance: TIRZEPATIDE
     Indication: Blood pressure increased
  9. ZEPBOUND [Suspect]
     Active Substance: TIRZEPATIDE
     Indication: Blood pressure increased
  10. ZEPBOUND [Suspect]
     Active Substance: TIRZEPATIDE
     Indication: Blood pressure increased
  11. ZEPBOUND [Suspect]
     Active Substance: TIRZEPATIDE
     Indication: Blood pressure increased
  12. ZEPBOUND [Suspect]
     Active Substance: TIRZEPATIDE
     Indication: Blood cholesterol increased
  13. ZEPBOUND [Suspect]
     Active Substance: TIRZEPATIDE
     Indication: Blood cholesterol increased
  14. ZEPBOUND [Suspect]
     Active Substance: TIRZEPATIDE
     Indication: Blood cholesterol increased
  15. ZEPBOUND [Suspect]
     Active Substance: TIRZEPATIDE
     Indication: Blood cholesterol increased

REACTIONS (2)
  - Injection site pain [Recovered/Resolved]
  - Incorrect dose administered [Unknown]

NARRATIVE: CASE EVENT DATE: 20240601
